FAERS Safety Report 4879799-6 (Version None)
Quarter: 2006Q1

REPORT INFORMATION
  Report Type: 
  Country: None (occurrence: None)
  Receive Date: 20060111
  Receipt Date: 20051228
  Transmission Date: 20060701
  Serious: Yes (Life-Threatening)
  Sender: FDA-Public Use
  Company Number: 02100-JPN-05-0497

PATIENT
  Age: 88 Year
  Sex: Female

DRUGS (6)
  1. CILOSTAZOL [Suspect]
     Indication: CEREBRAL INFARCTION
     Dosage: 200 MG, ORAL
     Route: 048
     Dates: start: 20050824, end: 20050826
  2. CILOSTAZOL [Suspect]
     Indication: CEREBRAL INFARCTION
     Dosage: 200 MG, ORAL
     Route: 048
     Dates: start: 20050829, end: 20050901
  3. OZAGREL SODIUM [Suspect]
     Indication: CEREBRAL INFARCTION
     Dosage: 160 MG, ORAL
     Route: 048
     Dates: start: 20050816, end: 20050822
  4. SUCRALFATE [Concomitant]
  5. AMANTADINE HCL [Concomitant]
  6. FAMOTIDINE [Concomitant]

REACTIONS (4)
  - BLOOD CREATININE INCREASED [None]
  - BLOOD UREA INCREASED [None]
  - BONE MARROW FAILURE [None]
  - GASTRITIS [None]
